FAERS Safety Report 5707482-3 (Version None)
Quarter: 2008Q2

REPORT INFORMATION
  Report Type: 
  Country: None (occurrence: None)
  Receive Date: 20080416
  Receipt Date: 20080408
  Transmission Date: 20081010
  Serious: Yes (Hospitalization, Other)
  Sender: FDA-Public Use
  Company Number: US-PFIZER INC-2008030781

PATIENT
  Sex: Male
  Weight: 158.8 kg

DRUGS (8)
  1. GEODON [Suspect]
     Indication: MILD MENTAL RETARDATION
     Route: 048
  2. GEODON [Interacting]
     Indication: ABNORMAL BEHAVIOUR
  3. GEODON [Interacting]
     Indication: ANGER
  4. MUCINEX [Interacting]
     Indication: COUGH
     Dates: start: 20080101, end: 20080101
  5. MUCINEX [Interacting]
     Indication: NASOPHARYNGITIS
  6. BENZONATATE [Interacting]
     Indication: COUGH
     Dates: start: 20080101, end: 20080101
  7. BENZONATATE [Interacting]
     Indication: NASOPHARYNGITIS
  8. LITHOBID [Concomitant]

REACTIONS (6)
  - ABNORMAL BEHAVIOUR [None]
  - CARDIAC ENZYMES INCREASED [None]
  - CHEST PAIN [None]
  - DRUG INTERACTION [None]
  - DYSARTHRIA [None]
  - DYSTONIA [None]
